FAERS Safety Report 9712175 (Version 1)
Quarter: 2013Q4

REPORT INFORMATION
  Report Type: Spontaneous
  Country: US (occurrence: None)
  Receive Date: 20131125
  Receipt Date: 20131125
  Transmission Date: 20140711
  Serious: No
  Sender: FDA-Public Use
  Company Number: None

PATIENT
  Age: 46 Year
  Sex: Female
  Weight: 68.95 kg

DRUGS (2)
  1. GENERIC NORCO HYDROCODONE/ACETOMINOPHEN 10/325 [Suspect]
     Indication: POST-TRAUMATIC PAIN
     Dosage: 2 PILLS; FOUR TIMES DAILY
     Route: 048
     Dates: start: 20131119, end: 20131122
  2. GENERIC NORCO HYDROCODONE/ACETOMINOPHEN 10/325 [Suspect]
     Indication: BACK INJURY
     Dosage: 2 PILLS; FOUR TIMES DAILY
     Route: 048
     Dates: start: 20131119, end: 20131122

REACTIONS (15)
  - Product quality issue [None]
  - Product substitution issue [None]
  - Malaise [None]
  - Headache [None]
  - Abdominal pain upper [None]
  - Nausea [None]
  - Vomiting [None]
  - Diarrhoea [None]
  - Pain [None]
  - Fatigue [None]
  - Decreased appetite [None]
  - Local swelling [None]
  - Local swelling [None]
  - Back pain [None]
  - Drug ineffective [None]
